FAERS Safety Report 13135671 (Version 3)
Quarter: 2017Q1

REPORT INFORMATION
  Report Type: Spontaneous
  Country: US (occurrence: US)
  Receive Date: 20170120
  Receipt Date: 20170320
  Transmission Date: 20170428
  Serious: Yes (Death)
  Sender: FDA-Public Use
  Company Number: US-TAIHO ONCOLOGY INC-EU-2017-00071

PATIENT
  Age: 44 Year
  Sex: Female

DRUGS (21)
  1. POTASSIUM [Concomitant]
     Active Substance: POTASSIUM
  2. CODEINE PHOSPHATE/PROMETHAZINE HYDROCHLORIDE [Concomitant]
  3. ATIVAN [Concomitant]
     Active Substance: LORAZEPAM
  4. PARACETAMOL/HYDROCODONE BITARTRATE [Concomitant]
  5. AUGMENTIN [Concomitant]
     Active Substance: AMOXICILLIN\CLAVULANATE POTASSIUM
  6. SALBUTAMOL [Concomitant]
     Active Substance: ALBUTEROL
  7. PROZAC [Concomitant]
     Active Substance: FLUOXETINE HYDROCHLORIDE
  8. FORMOTEROL FUMARATE/BUDESONIDE [Concomitant]
  9. POTASSIUM CHLORIDE. [Concomitant]
     Active Substance: POTASSIUM CHLORIDE
  10. LONSURF [Suspect]
     Active Substance: TIPIRACIL HYDROCHLORIDE\TRIFLURIDINE
     Indication: COLON CANCER
     Route: 048
     Dates: start: 20161216
  11. CETUXIMAB. [Suspect]
     Active Substance: CETUXIMAB
     Dosage: NI
  12. METHOCARBAMOL. [Concomitant]
     Active Substance: METHOCARBAMOL
  13. PREDNISONE. [Concomitant]
     Active Substance: PREDNISONE
  14. SPIRIVA [Concomitant]
     Active Substance: TIOTROPIUM BROMIDE MONOHYDRATE
  15. LONSURF [Suspect]
     Active Substance: TIPIRACIL HYDROCHLORIDE\TRIFLURIDINE
     Indication: METASTASES TO LUNG
  16. PRILOSEC [Concomitant]
     Active Substance: OMEPRAZOLE MAGNESIUM
  17. EXCEDRIN [Concomitant]
     Active Substance: ACETAMINOPHEN\ASPIRIN\CAFFEINE
  18. METOCLOPRAMIDE HYDROCHLORIDE. [Concomitant]
     Active Substance: METOCLOPRAMIDE HYDROCHLORIDE
  19. BENADRYL [Concomitant]
     Active Substance: DIPHENHYDRAMINE HYDROCHLORIDE
  20. CLONAZEPAM. [Concomitant]
     Active Substance: CLONAZEPAM
  21. DILAUDID [Concomitant]
     Active Substance: HYDROMORPHONE HYDROCHLORIDE

REACTIONS (5)
  - Disease progression [Fatal]
  - Respiratory failure [Fatal]
  - Weight decreased [Unknown]
  - Hypomagnesaemia [Unknown]
  - Pleural effusion [Unknown]

NARRATIVE: CASE EVENT DATE: 20161220
